FAERS Safety Report 5036050-4 (Version None)
Quarter: 2006Q2

REPORT INFORMATION
  Report Type: 
  Country: None (occurrence: None)
  Receive Date: 20060526
  Receipt Date: 20060412
  Transmission Date: 20061013
  Serious: No
  Sender: FDA-Public Use
  Company Number: 223330

PATIENT
  Age: 58 Year
  Sex: Female

DRUGS (1)
  1. RAPTIVA [Suspect]
     Indication: PSORIASIS
     Dosage: SEE IMAGE
     Route: 058
     Dates: start: 20060315

REACTIONS (4)
  - COUGH [None]
  - HEADACHE [None]
  - INFLUENZA [None]
  - PHARYNGOLARYNGEAL PAIN [None]
